FAERS Safety Report 7703628-6 (Version None)
Quarter: 2011Q3

REPORT INFORMATION
  Report Type: 
  Country: None (occurrence: None)
  Receive Date: 20110823
  Receipt Date: 20110812
  Transmission Date: 20111222
  Serious: Yes (Other)
  Sender: FDA-Public Use
  Company Number: PHHY2011ZA73020

PATIENT
  Sex: Male

DRUGS (1)
  1. ZOLEDRONOC ACID [Suspect]
     Indication: FRACTURE
     Dosage: 5 MG /100 ML , YEARLY
     Route: 042
     Dates: start: 20100101

REACTIONS (2)
  - TOOTH DISORDER [None]
  - IMPAIRED HEALING [None]
